FAERS Safety Report 23389129 (Version 4)
Quarter: 2024Q2

REPORT INFORMATION
  Report Type: Spontaneous
  Country: US (occurrence: US)
  Receive Date: 20240110
  Receipt Date: 20240508
  Transmission Date: 20240715
  Serious: No
  Sender: FDA-Public Use
  Company Number: US-PURDUE PHARMA-USA-2024-0306958

PATIENT
  Sex: Female

DRUGS (2)
  1. OXYCODONE HYDROCHLORIDE [Suspect]
     Active Substance: OXYCODONE HYDROCHLORIDE
     Indication: Pain
     Dosage: 1 TABLET, Q6H
     Route: 048
     Dates: start: 20231215, end: 20231220
  2. OXYCODONE HYDROCHLORIDE [Suspect]
     Active Substance: OXYCODONE HYDROCHLORIDE
     Dosage: 1 TABLET, Q6H (ONE TABLET BY MOUTH EVERY SIX HOURS)
     Route: 048
     Dates: start: 20231215, end: 20231222

REACTIONS (11)
  - Illness [Unknown]
  - Drug screen negative [Unknown]
  - Therapeutic response changed [Unknown]
  - Drug withdrawal syndrome [Unknown]
  - Product substitution issue [Unknown]
  - Adverse reaction [Unknown]
  - Nausea [Unknown]
  - Abdominal discomfort [Unknown]
  - Chills [Recovered/Resolved]
  - Vomiting [Recovered/Resolved]
  - Diarrhoea [Recovered/Resolved]
